FAERS Safety Report 18898556 (Version 1)
Quarter: 2021Q1

REPORT INFORMATION
  Report Type: Report from Study
  Country: US (occurrence: US)
  Receive Date: 20210216
  Receipt Date: 20210216
  Transmission Date: 20210420
  Serious: Yes (Other)
  Sender: FDA-Public Use
  Company Number: US-ASTELLAS-2021US005553

PATIENT
  Age: 56 Year
  Sex: Female

DRUGS (7)
  1. SOFOSBUVIR [Interacting]
     Active Substance: SOFOSBUVIR
     Indication: HEPATITIS CHOLESTATIC
     Route: 048
  2. SIMEPREVIR [Interacting]
     Active Substance: SIMEPREVIR
     Indication: HEPATITIS C
  3. MYCOPHENOLATE MOFETIL. [Concomitant]
     Active Substance: MYCOPHENOLATE MOFETIL
     Indication: LIVER TRANSPLANT
     Dosage: UNK UNK, UNKNOWN FREQ.
     Route: 065
  4. SOFOSBUVIR [Interacting]
     Active Substance: SOFOSBUVIR
     Indication: HEPATITIS C
  5. TACROLIMUS. [Interacting]
     Active Substance: TACROLIMUS
     Dosage: UNK UNK, UNKNOWN FREQ. (INCREASED DOSE)
     Route: 065
  6. TACROLIMUS. [Suspect]
     Active Substance: TACROLIMUS
     Indication: LIVER TRANSPLANT
     Dosage: UNK UNK, UNKNOWN FREQ.
     Route: 065
  7. SIMEPREVIR [Interacting]
     Active Substance: SIMEPREVIR
     Indication: HEPATITIS CHOLESTATIC
     Route: 048

REACTIONS (3)
  - Hepatitis C [Recovering/Resolving]
  - Hepatitis cholestatic [Recovering/Resolving]
  - Drug interaction [Unknown]
